FAERS Safety Report 19040716 (Version 1)
Quarter: 2021Q1

REPORT INFORMATION
  Report Type: Report from Study
  Country: DE (occurrence: DE)
  Receive Date: 20210322
  Receipt Date: 20210322
  Transmission Date: 20210420
  Serious: Yes (Death, Other)
  Sender: FDA-Public Use
  Company Number: DE-INCYTE CORPORATION-2017IN009153

PATIENT

DRUGS (13)
  1. INCB018424 [Suspect]
     Active Substance: RUXOLITINIB
     Indication: PRIMARY MYELOFIBROSIS
     Dosage: 25 MG, QD
     Route: 048
     Dates: start: 20160930
  2. INCB018424 [Suspect]
     Active Substance: RUXOLITINIB
     Dosage: 10 MG, QD
     Route: 048
     Dates: start: 20170418
  3. INCB018424 [Suspect]
     Active Substance: RUXOLITINIB
     Dosage: 10 MG, QD
     Route: 048
     Dates: start: 20180313, end: 20180325
  4. INCB018424 [Suspect]
     Active Substance: RUXOLITINIB
     Dosage: 10 MG, QD
     Route: 048
     Dates: start: 20180620
  5. ATACAND [Concomitant]
     Active Substance: CANDESARTAN CILEXETIL
     Indication: HYPERTENSION
     Dosage: UNK UNK, QD
     Route: 065
     Dates: start: 20131125, end: 20181004
  6. TAMOXIFEN [Concomitant]
     Active Substance: TAMOXIFEN
     Indication: BREAST CANCER
     Dosage: UNK
     Route: 065
     Dates: start: 20171025, end: 20171205
  7. CYKLOKAPRON [Concomitant]
     Active Substance: TRANEXAMIC ACID
     Indication: THROMBOCYTOPENIA
     Dosage: 2000 MG, UNK
     Route: 065
     Dates: start: 20181001
  8. VIGANTOLETTEN [Concomitant]
     Active Substance: CHOLECALCIFEROL
     Indication: PRODUCT USED FOR UNKNOWN INDICATION
     Dosage: UNK
     Route: 065
     Dates: start: 20131125, end: 20181004
  9. INCB018424 [Suspect]
     Active Substance: RUXOLITINIB
     Dosage: 10 MG, QD
     Route: 048
     Dates: start: 20170817, end: 20171205
  10. INCB018424 [Suspect]
     Active Substance: RUXOLITINIB
     Dosage: 15 MILLIGRAM, QD
     Route: 048
     Dates: start: 20180213, end: 20180312
  11. XARELTO [Concomitant]
     Active Substance: RIVAROXABAN
     Indication: DEEP VEIN THROMBOSIS
     Dosage: 20 MG, QD
     Route: 065
     Dates: start: 20160414, end: 20170111
  12. INCB018424 [Suspect]
     Active Substance: RUXOLITINIB
     Dosage: 10 MG, QD
     Route: 048
     Dates: start: 20180207, end: 20180212
  13. INCB018424 [Suspect]
     Active Substance: RUXOLITINIB
     Dosage: 15 MG, QD
     Route: 048
     Dates: start: 20180326, end: 20180530

REACTIONS (12)
  - Gingival bleeding [Unknown]
  - Metastases to liver [Fatal]
  - Abdominal pain upper [Fatal]
  - Conjunctival haemorrhage [Unknown]
  - Oedema peripheral [Unknown]
  - Epistaxis [Unknown]
  - Inappropriate schedule of product administration [Unknown]
  - Ascites [Fatal]
  - Breast cancer metastatic [Fatal]
  - Concomitant disease aggravated [Fatal]
  - Malignant peritoneal neoplasm [Fatal]
  - Metastases to stomach [Fatal]

NARRATIVE: CASE EVENT DATE: 20160930
